FAERS Safety Report 9761238 (Version 1)
Quarter: 2013Q4

REPORT INFORMATION
  Report Type: Spontaneous
  Country: US (occurrence: US)
  Receive Date: 20131216
  Receipt Date: 20131216
  Transmission Date: 20140711
  Serious: Yes (Death)
  Sender: FDA-Public Use
  Company Number: US-BRISTOL-MYERS SQUIBB COMPANY-19908151

PATIENT
  Sex: 0

DRUGS (2)
  1. BYETTA [Suspect]
     Dates: start: 200809, end: 201104
  2. JANUMET [Suspect]
     Dates: start: 200709, end: 200808

REACTIONS (1)
  - Pancreatic carcinoma [Fatal]
